FAERS Safety Report 25078414 (Version 1)
Quarter: 2025Q1

REPORT INFORMATION
  Report Type: Spontaneous
  Country: US (occurrence: None)
  Receive Date: 20250313
  Receipt Date: 20250313
  Transmission Date: 20250409
  Serious: Yes (Other)
  Sender: FDA-CTU
  Company Number: None

PATIENT
  Age: 63 Year
  Sex: Female

DRUGS (25)
  1. REPATHA [Suspect]
     Active Substance: EVOLOCUMAB
     Indication: Hyperlipidaemia
     Dosage: OTHER FREQUENCY : EVERY 28 DAYS;?
     Route: 058
     Dates: start: 20250110
  2. ZENPEP [Suspect]
     Active Substance: PANCRELIPASE AMYLASE\PANCRELIPASE LIPASE\PANCRELIPASE PROTEASE
     Indication: Diarrhoea
     Dosage: OTHER FREQUENCY : TID, BEFORE MEALS;?
     Route: 048
     Dates: start: 20240426
  3. REPATHA [Suspect]
     Active Substance: EVOLOCUMAB
     Dates: start: 20220413, end: 20241030
  4. ENVARSUS XR [Suspect]
     Active Substance: TACROLIMUS
  5. ENVARSUS XR [Suspect]
     Active Substance: TACROLIMUS
  6. VASCEPA [Concomitant]
     Active Substance: ICOSAPENT ETHYL
     Dates: start: 20220413
  7. Zolpidem 5 mg tablet [Concomitant]
     Dates: start: 20210916
  8. Novolog Flexpen injection 100 units/mL [Concomitant]
     Dates: start: 20220216
  9. AZATHIOPRINE [Concomitant]
     Active Substance: AZATHIOPRINE
     Dates: start: 20220615
  10. Lantus Solostar pen 100unit/mL [Concomitant]
     Dates: start: 20220810
  11. EZETIMIBE [Concomitant]
     Active Substance: EZETIMIBE
     Dates: start: 20220908
  12. CITALOPRAM HYDROCHLORIDE [Concomitant]
     Active Substance: CITALOPRAM HYDROCHLORIDE
     Dates: start: 20221011
  13. ferrous sulfate 324 mg EC tablet [Concomitant]
     Dates: start: 20220707
  14. Ozempic 2 mg/3 ml [Concomitant]
     Dates: start: 20250307
  15. oyster calcium 500 mg tablet [Concomitant]
     Dates: start: 20220810
  16. calcitriol 0.25 mcg capsule [Concomitant]
     Dates: start: 20221011
  17. aspirin 81 mg EC tablet [Concomitant]
     Dates: start: 20221011
  18. MG plus protein 133 mg tablet [Concomitant]
     Dates: start: 20220707
  19. levothyroxine 50 mcg tablet [Concomitant]
     Dates: start: 20220810
  20. OMEPRAZOLE [Concomitant]
     Active Substance: OMEPRAZOLE
     Dates: start: 20220510
  21. vitamin C 500 mg tablet [Concomitant]
     Dates: start: 20220607
  22. bumetanide 0.5 mg tablet [Concomitant]
     Dates: start: 20220913
  23. vitamin E 400 IU capsule [Concomitant]
     Dates: start: 20221214
  24. MAPAP Acetaminophen 500 mg tablets [Concomitant]
  25. Jardiance 10 mg tablet [Concomitant]

REACTIONS (1)
  - Skin cancer [None]

NARRATIVE: CASE EVENT DATE: 20250312
